FAERS Safety Report 5691937-4 (Version None)
Quarter: 2008Q1

REPORT INFORMATION
  Report Type: 
  Country: None (occurrence: None)
  Receive Date: 20080331
  Receipt Date: 20080212
  Transmission Date: 20080703
  Serious: Yes (Hospitalization)
  Sender: FDA-Public Use
  Company Number: 2008000310

PATIENT
  Sex: Male

DRUGS (2)
  1. ERLOTINIB (ERLOTINIB HCL) (TABLET)(ERLOTINIB [Suspect]
     Indication: PANCREATIC CARCINOMA
     Dosage: (100 MG,QD),ORAL
     Route: 048
     Dates: start: 20070619
  2. GEMCITABINE [Suspect]
     Indication: PANCREATIC CARCINOMA
     Dosage: (1000 MG/M2,Q4WEEK), INTRAVENOUS
     Route: 042
     Dates: start: 20070619

REACTIONS (1)
  - ASCITES [None]
